FAERS Safety Report 8350199-X (Version None)
Quarter: 2012Q2

REPORT INFORMATION
  Report Type: 
  Country: None (occurrence: None)
  Receive Date: 20120510
  Receipt Date: 20120504
  Transmission Date: 20120825
  Serious: Yes (Death)
  Sender: FDA-Public Use
  Company Number: HU-ROCHE-1065461

PATIENT

DRUGS (1)
  1. XELODA [Suspect]
     Indication: BREAST CANCER METASTATIC

REACTIONS (1)
  - ANAEMIA [None]
